FAERS Safety Report 9188691 (Version 1)
Quarter: 2013Q1

REPORT INFORMATION
  Report Type: Spontaneous
  Country: HU (occurrence: HU)
  Receive Date: 20130325
  Receipt Date: 20130325
  Transmission Date: 20140127
  Serious: Yes (Other)
  Sender: FDA-Public Use
  Company Number: HU-ROCHE-1203918

PATIENT
  Age: 79 None
  Sex: Male

DRUGS (3)
  1. XELODA [Suspect]
     Indication: COLON NEOPLASM
     Route: 048
     Dates: start: 20121210, end: 20130117
  2. XELODA [Interacting]
     Route: 048
     Dates: start: 20130316
  3. WARFARIN SODIUM [Interacting]
     Indication: VENOUS THROMBOSIS
     Route: 065

REACTIONS (6)
  - Diarrhoea [Recovered/Resolved]
  - Hypotonia [Recovered/Resolved]
  - Syncope [Recovered/Resolved]
  - Drug interaction [Recovered/Resolved]
  - Palmar-plantar erythrodysaesthesia syndrome [Unknown]
  - International normalised ratio increased [Recovered/Resolved]
